FAERS Safety Report 7059351-7 (Version None)
Quarter: 2010Q4

REPORT INFORMATION
  Report Type: 
  Country: None (occurrence: None)
  Receive Date: 20101025
  Receipt Date: 20101013
  Transmission Date: 20110411
  Serious: No
  Sender: FDA-Public Use
  Company Number: 2008BI025899

PATIENT
  Sex: Female

DRUGS (1)
  1. TYSABRI [Suspect]
     Indication: MULTIPLE SCLEROSIS
     Route: 042
     Dates: start: 20080728

REACTIONS (6)
  - ASTHENIA [None]
  - GENERAL SYMPTOM [None]
  - HEADACHE [None]
  - HOT FLUSH [None]
  - NAUSEA [None]
  - VOMITING [None]
